FAERS Safety Report 19309148 (Version 1)
Quarter: 2021Q2

REPORT INFORMATION
  Report Type: Spontaneous
  Country: US (occurrence: US)
  Receive Date: 20210526
  Receipt Date: 20210526
  Transmission Date: 20210717
  Serious: No
  Sender: FDA-Public Use
  Company Number: US-ESPERIONTHERAPEUTICS-2021USA00446

PATIENT
  Age: 67 Year
  Sex: Female

DRUGS (3)
  1. NEXLETOL [Suspect]
     Active Substance: BEMPEDOIC ACID
     Dosage: 180 MILLIGRAM, QW
     Route: 048
     Dates: start: 202105
  2. NEXLETOL [Suspect]
     Active Substance: BEMPEDOIC ACID
     Indication: LOW DENSITY LIPOPROTEIN INCREASED
     Dosage: UNK UNK, QD
     Route: 048
     Dates: start: 20210216, end: 20210303
  3. NEXLETOL [Suspect]
     Active Substance: BEMPEDOIC ACID
     Dosage: 180 MILLIGRAM, TIW
     Route: 048
     Dates: start: 20210416

REACTIONS (8)
  - Myalgia [Not Recovered/Not Resolved]
  - Insomnia [Not Recovered/Not Resolved]
  - Malaise [Recovered/Resolved]
  - Pain [Recovered/Resolved]
  - Aspartate aminotransferase increased [Not Recovered/Not Resolved]
  - Off label use [Unknown]
  - Alanine aminotransferase increased [Not Recovered/Not Resolved]
  - Fatigue [Not Recovered/Not Resolved]

NARRATIVE: CASE EVENT DATE: 202102
